FAERS Safety Report 15278943 (Version 1)
Quarter: 2018Q3

REPORT INFORMATION
  Report Type: Spontaneous
  Country: PR (occurrence: PR)
  Receive Date: 20180815
  Receipt Date: 20180815
  Transmission Date: 20181010
  Serious: Yes (Other)
  Sender: FDA-Public Use
  Company Number: PR-ROCHE-2170014

PATIENT
  Sex: Female
  Weight: 57.66 kg

DRUGS (2)
  1. XELODA [Suspect]
     Active Substance: CAPECITABINE
     Indication: GALLBLADDER CANCER
     Route: 048
     Dates: start: 20180703
  2. XELODA [Suspect]
     Active Substance: CAPECITABINE
     Route: 048
     Dates: start: 20180703

REACTIONS (4)
  - Off label use [Unknown]
  - Intentional product use issue [Unknown]
  - Haematochezia [Unknown]
  - Constipation [Unknown]
